FAERS Safety Report 7890138-9 (Version None)
Quarter: 2011Q4

REPORT INFORMATION
  Report Type: 
  Country: None (occurrence: None)
  Receive Date: 20111103
  Receipt Date: 20111026
  Transmission Date: 20120403
  Serious: Yes (Hospitalization, Other)
  Sender: FDA-Public Use
  Company Number: US-ASTRAZENECA-2011SE64920

PATIENT
  Age: 53 Year
  Sex: Female
  Weight: 81.6 kg

DRUGS (12)
  1. NEXIUM [Suspect]
     Indication: GASTROOESOPHAGEAL REFLUX DISEASE
     Dosage: TWO DOSES IN A DAY / TWO PILLS DAILY
     Route: 048
  2. CRESTOR [Suspect]
     Indication: BLOOD CHOLESTEROL ABNORMAL
     Route: 048
  3. TAMPERINE [Concomitant]
  4. ALBUTEROL [Concomitant]
     Dosage: PRN
  5. DIAZEPAM [Concomitant]
  6. EFEXER [Concomitant]
  7. CINGULAR [Concomitant]
  8. ASPIRIN [Concomitant]
     Dosage: 81 DOSE DAILY
  9. CELEBREX [Concomitant]
  10. FLEXRIL [Concomitant]
  11. MYSOLINE [Concomitant]
  12. MORPHINE SULFATE IMR [Concomitant]

REACTIONS (6)
  - RETINAL VEIN OCCLUSION [None]
  - CARDIOVASCULAR DISORDER [None]
  - FIBROMYALGIA [None]
  - OEDEMA PERIPHERAL [None]
  - OSTEOPOROSIS [None]
  - HEARING IMPAIRED [None]
